FAERS Safety Report 19708933 (Version 1)
Quarter: 2021Q3

REPORT INFORMATION
  Report Type: Spontaneous
  Country: US (occurrence: US)
  Receive Date: 20210816
  Receipt Date: 20210816
  Transmission Date: 20211014
  Serious: No
  Sender: FDA-Public Use
  Company Number: US-BIOGEN-2020BI00914776

PATIENT
  Sex: Female

DRUGS (4)
  1. AMPYRA [Suspect]
     Active Substance: DALFAMPRIDINE
     Indication: GAIT DISTURBANCE
     Route: 065
  2. TECFIDERA [Suspect]
     Active Substance: DIMETHYL FUMARATE
     Indication: MULTIPLE SCLEROSIS
     Route: 048
     Dates: start: 20150724, end: 20150730
  3. TECFIDERA [Suspect]
     Active Substance: DIMETHYL FUMARATE
     Route: 048
     Dates: start: 20150731
  4. CELEBREX [Concomitant]
     Active Substance: CELECOXIB
     Route: 065

REACTIONS (12)
  - Osteoarthritis [Unknown]
  - Memory impairment [Unknown]
  - Thinking abnormal [Unknown]
  - Gastric disorder [Recovered/Resolved]
  - Tendon rupture [Unknown]
  - Meniscus injury [Recovered/Resolved]
  - Pruritus [Recovered/Resolved]
  - Flushing [Not Recovered/Not Resolved]
  - Nausea [Not Recovered/Not Resolved]
  - Flatulence [Not Recovered/Not Resolved]
  - Fall [Recovered/Resolved]
  - Joint space narrowing [Not Recovered/Not Resolved]

NARRATIVE: CASE EVENT DATE: 2016
